FAERS Safety Report 8817872 (Version 3)
Quarter: 2014Q1

REPORT INFORMATION
  Report Type: Report from Study
  Country: FR (occurrence: FR)
  Receive Date: 20121004
  Receipt Date: 20140224
  Transmission Date: 20141002
  Serious: Yes (Hospitalization)
  Sender: FDA-Public Use
  Company Number: FR-TEVA-330794USA

PATIENT
  Age: 76 Year
  Sex: Male
  Weight: 71 kg

DRUGS (11)
  1. TREANDA [Suspect]
     Indication: MANTLE CELL LYMPHOMA
     Route: 042
     Dates: start: 20120302, end: 20120303
  2. TREANDA [Suspect]
     Route: 042
     Dates: start: 20120427, end: 20120428
  3. RITUXIMAB [Suspect]
     Route: 042
     Dates: start: 20120302
  4. RITUXIMAB [Suspect]
     Route: 042
     Dates: start: 20120427
  5. BORTEZOMIB [Suspect]
     Route: 058
     Dates: start: 20120302, end: 20120309
  6. BORTEZOMIB [Suspect]
     Route: 058
     Dates: start: 20120330
  7. DEXAMETHASONE [Suspect]
     Indication: MANTLE CELL LYMPHOMA
     Dosage: DAILY
     Route: 048
     Dates: start: 20120302, end: 20120428
  8. FLUINDIONE [Concomitant]
  9. ZELITREX [Concomitant]
  10. BACTRIM [Concomitant]
  11. LEDERFOLIN [Concomitant]

REACTIONS (5)
  - General physical health deterioration [Recovered/Resolved]
  - Pyrexia [Recovered/Resolved]
  - Pyelonephritis [Recovered/Resolved]
  - Oral candidiasis [Recovered/Resolved]
  - Nausea [Unknown]
